FAERS Safety Report 8090291-0 (Version None)
Quarter: 2012Q1

REPORT INFORMATION
  Report Type: 
  Country: None (occurrence: None)
  Receive Date: 20120129
  Receipt Date: 20111118
  Transmission Date: 20120608
  Serious: Yes (Hospitalization)
  Sender: FDA-Public Use
  Company Number: US-ABBOTT-11P-163-0873663-00

PATIENT
  Age: 54 Year
  Sex: Male

DRUGS (28)
  1. POTASSIUM [Concomitant]
     Indication: MINERAL SUPPLEMENTATION
  2. ZEGRID BICARB [Concomitant]
     Indication: FLATULENCE
  3. SYNTHROID [Concomitant]
     Indication: HYPOTHYROIDISM
  4. CLONAZEPAM [Concomitant]
     Indication: ANXIETY
     Dosage: AT BEDTIME
  5. VITAMIN B COMPLEX CAP [Concomitant]
     Indication: VITAMIN B COMPLEX DEFICIENCY
     Dosage: DAILY
  6. MULTI-VITAMIN [Concomitant]
     Indication: VITAMIN SUPPLEMENTATION
     Dosage: DAILY
  7. BENADRYL [Concomitant]
     Indication: HYPERSENSITIVITY
  8. REQUIP [Concomitant]
     Indication: RESTLESS LEGS SYNDROME
     Dosage: AT BEDTIME
  9. VITAMIN B-12 [Concomitant]
     Indication: VITAMIN SUPPLEMENTATION
     Dosage: OPPOSITE WEEK OF HUMIRA
     Route: 050
  10. FLAGYL [Concomitant]
     Indication: PRODUCT USED FOR UNKNOWN INDICATION
  11. LASIX [Concomitant]
     Indication: SWELLING
  12. HUMIRA [Suspect]
     Indication: CROHN'S DISEASE
     Dates: start: 20060101
  13. TRICOR [Concomitant]
     Indication: BLOOD TRIGLYCERIDES INCREASED
  14. ZEGRID BICARB [Concomitant]
     Indication: GASTROOESOPHAGEAL REFLUX DISEASE
     Dosage: 40-1 1000MG DAILY
  15. REMERON [Concomitant]
     Indication: BIPOLAR DISORDER
     Dosage: AT HOUR OF SLEEP
  16. ACETAMINOPHEN [Concomitant]
     Indication: PAIN
  17. EXFORGE [Concomitant]
     Indication: HYPERTENSION
  18. MAGNESIUM [Concomitant]
     Indication: MINERAL SUPPLEMENTATION
  19. CALCIUM [Concomitant]
     Indication: MINERAL SUPPLEMENTATION
  20. LAMICTAL [Concomitant]
     Indication: BIPOLAR DISORDER
  21. ASPIRIN [Concomitant]
     Indication: PRODUCT USED FOR UNKNOWN INDICATION
  22. FLONASE [Concomitant]
     Indication: HYPERSENSITIVITY
     Route: 045
  23. PROBIOTICS [Concomitant]
     Indication: CROHN'S DISEASE
     Dosage: DAILY
  24. BENADRYL [Concomitant]
     Indication: INSOMNIA
  25. CLONAZEPAM [Concomitant]
     Indication: INSOMNIA
  26. PENTASA [Concomitant]
     Indication: GASTROINTESTINAL INFLAMMATION
  27. ZYRTEC [Concomitant]
     Indication: HYPERSENSITIVITY
  28. PREDNISONE TAB [Concomitant]
     Indication: PRODUCT USED FOR UNKNOWN INDICATION
     Dosage: 2 TABLETS FOR 3 DAYS, 1 TABLET FOR 10 DAYS

REACTIONS (1)
  - CROHN'S DISEASE [None]
